FAERS Safety Report 5327941-5 (Version None)
Quarter: 2007Q2

REPORT INFORMATION
  Report Type: 
  Country: None (occurrence: None)
  Receive Date: 20070517
  Receipt Date: 20070508
  Transmission Date: 20071010
  Serious: Yes (Other)
  Sender: FDA-Public Use
  Company Number: US-PFIZER INC-2007030615

PATIENT
  Sex: Female

DRUGS (7)
  1. XANAX XR [Suspect]
  2. CHANTIX [Suspect]
     Indication: EX-SMOKER
  3. ZOLOFT [Suspect]
     Indication: DEPRESSION
  4. SIMVASTATIN [Concomitant]
  5. ZOCOR [Concomitant]
  6. LOPID [Concomitant]
  7. VALIUM [Concomitant]

REACTIONS (3)
  - BIPOLAR DISORDER [None]
  - DEPRESSION [None]
  - GASTROOESOPHAGEAL REFLUX DISEASE [None]
